FAERS Safety Report 25488275 (Version 1)
Quarter: 2025Q2

REPORT INFORMATION
  Report Type: Spontaneous
  Country: US (occurrence: US)
  Receive Date: 20250627
  Receipt Date: 20250627
  Transmission Date: 20250716
  Serious: No
  Sender: PFIZER
  Company Number: US-PFIZER INC-202500129568

PATIENT
  Age: 67 Year
  Sex: Male

DRUGS (2)
  1. BRAFTOVI [Suspect]
     Active Substance: ENCORAFENIB
  2. MEKTOVI [Suspect]
     Active Substance: BINIMETINIB

REACTIONS (1)
  - Malaise [Unknown]
